FAERS Safety Report 11585934 (Version 1)
Quarter: 2015Q4

REPORT INFORMATION
  Report Type: Spontaneous
  Country: CA (occurrence: CA)
  Receive Date: 20151001
  Receipt Date: 20151001
  Transmission Date: 20160304
  Serious: Yes (Other)
  Sender: FDA-Public Use
  Company Number: CA-DEP_12778_2015

PATIENT
  Sex: Female

DRUGS (17)
  1. NUCYNTA ER [Suspect]
     Active Substance: TAPENTADOL HYDROCHLORIDE
     Dosage: 450 MG, UNK
     Route: 048
  2. TOPIRAMATE. [Concomitant]
     Active Substance: TOPIRAMATE
     Dosage: DF
  3. NUVARING [Concomitant]
     Active Substance: ETHINYL ESTRADIOL\ETONOGESTREL
     Dosage: DF
  4. NUCYNTA ER [Suspect]
     Active Substance: TAPENTADOL HYDROCHLORIDE
     Indication: BACK PAIN
     Route: 048
     Dates: start: 20150814, end: 201508
  5. ZOPICLONE [Concomitant]
     Active Substance: ZOPICLONE
     Dosage: DF
     Dates: start: 20150917
  6. ZOPICLONE [Concomitant]
     Active Substance: ZOPICLONE
     Dosage: DF
     Dates: start: 20150724, end: 20150909
  7. TYLENOL [Concomitant]
     Active Substance: ACETAMINOPHEN
     Dosage: DF
  8. ALLOPURINOL. [Concomitant]
     Active Substance: ALLOPURINOL
     Dosage: DF
  9. DICLOFENAC [Concomitant]
     Active Substance: DICLOFENAC
     Dosage: DF
  10. PREGABALIN. [Concomitant]
     Active Substance: PREGABALIN
     Dosage: DF
  11. NUCYNTA ER [Suspect]
     Active Substance: TAPENTADOL HYDROCHLORIDE
     Route: 048
     Dates: start: 201508
  12. NUCYNTA [Suspect]
     Active Substance: TAPENTADOL HYDROCHLORIDE
     Indication: BREAKTHROUGH PAIN
     Dosage: 50 MG, UNK
     Route: 048
  13. NUCYNTA ER [Suspect]
     Active Substance: TAPENTADOL HYDROCHLORIDE
     Route: 048
     Dates: start: 201508, end: 201508
  14. ZOPICLONE [Concomitant]
     Active Substance: ZOPICLONE
     Dosage: DF
     Dates: start: 20150909, end: 20150917
  15. CETIRIZINE [Concomitant]
     Active Substance: CETIRIZINE HYDROCHLORIDE
     Dosage: DF
  16. NUCYNTA ER [Suspect]
     Active Substance: TAPENTADOL HYDROCHLORIDE
     Route: 048
     Dates: start: 201508, end: 201508
  17. TOLTERODINE [Concomitant]
     Active Substance: TOLTERODINE
     Dosage: DF

REACTIONS (10)
  - Hyperhidrosis [Unknown]
  - Blood pressure increased [Unknown]
  - Piloerection [Unknown]
  - Burning sensation [Unknown]
  - Muscle twitching [Unknown]
  - Diarrhoea [Unknown]
  - Serotonin syndrome [Unknown]
  - Tremor [Unknown]
  - Chills [Unknown]
  - Restlessness [Unknown]
